FAERS Safety Report 7358190-7 (Version None)
Quarter: 2011Q1

REPORT INFORMATION
  Report Type: 
  Country: None (occurrence: None)
  Receive Date: 20110314
  Receipt Date: 20110314
  Transmission Date: 20110831
  Serious: No
  Sender: FDA-Public Use
  Company Number: None

PATIENT
  Sex: Female
  Weight: 57.6068 kg

DRUGS (1)
  1. AZITHROMYCIN [Suspect]
     Dosage: 6 2 EACH DAY DAY 1 ; 2 EACH DY 4X
     Dates: start: 20101230, end: 20110101

REACTIONS (8)
  - VOMITING [None]
  - PRURITUS [None]
  - DIARRHOEA [None]
  - TINNITUS [None]
  - BLOOD POTASSIUM [None]
  - VERTIGO [None]
  - BRONCHITIS [None]
  - NAUSEA [None]
